FAERS Safety Report 15158534 (Version 2)
Quarter: 2018Q3

REPORT INFORMATION
  Report Type: Spontaneous
  Country: MX (occurrence: MX)
  Receive Date: 20180718
  Receipt Date: 20180719
  Transmission Date: 20181010
  Serious: Yes (Life-Threatening, Other)
  Sender: FDA-Public Use
  Company Number: PHHY2018MX042535

PATIENT
  Age: 25 Year
  Sex: Male

DRUGS (3)
  1. LINEZOLID. [Suspect]
     Active Substance: LINEZOLID
     Indication: EVIDENCE BASED TREATMENT
     Dosage: UNK
     Route: 065
  2. MEROPENEM. [Suspect]
     Active Substance: MEROPENEM
     Indication: EVIDENCE BASED TREATMENT
     Dosage: UNK
     Route: 065
  3. VASOPRESSINE [Concomitant]
     Indication: PRODUCT USED FOR UNKNOWN INDICATION
     Dosage: UNK
     Route: 065

REACTIONS (10)
  - Rash [Unknown]
  - Acute kidney injury [Recovered/Resolved]
  - Pneumonia [Recovered/Resolved]
  - Necrotising fasciitis [Unknown]
  - Respiratory failure [Recovered/Resolved]
  - Acute respiratory distress syndrome [Recovered/Resolved]
  - Thrombocytopenia [Recovered/Resolved]
  - Blister [Unknown]
  - Glomerular filtration rate abnormal [Recovered/Resolved]
  - Blood creatinine increased [Recovered/Resolved]
